FAERS Safety Report 9342888 (Version 3)
Quarter: 2013Q3

REPORT INFORMATION
  Report Type: Spontaneous
  Country: JP (occurrence: JP)
  Receive Date: 20130611
  Receipt Date: 20130717
  Transmission Date: 20140515
  Serious: Yes (Hospitalization)
  Sender: FDA-Public Use
  Company Number: JP-GLAXOSMITHKLINE-B0898005A

PATIENT
  Age: 46 Year
  Sex: Male

DRUGS (5)
  1. LAMICTAL [Suspect]
     Indication: EPILEPSY
     Dosage: 25MG PER DAY
     Route: 048
     Dates: start: 20130217, end: 20130302
  2. HALCION [Concomitant]
     Indication: INSOMNIA
     Dosage: .5MG PER DAY
     Route: 048
     Dates: start: 201302, end: 20130304
  3. TRAMCET [Concomitant]
     Indication: PAIN
     Dosage: 1IUAX THREE TIMES PER DAY
     Route: 048
     Dates: start: 20130217, end: 20130304
  4. NESINA [Concomitant]
     Indication: DIABETES MELLITUS
     Dosage: 25MG PER DAY
     Route: 048
     Dates: start: 20130217, end: 20130304
  5. PROHEPARUM [Concomitant]
     Indication: LIVER DISORDER
     Dosage: 2IUAX THREE TIMES PER DAY
     Route: 048
     Dates: start: 20130217, end: 20130304

REACTIONS (16)
  - Stevens-Johnson syndrome [Recovered/Resolved]
  - Erythema multiforme [Recovered/Resolved]
  - Hepatic function abnormal [Recovered/Resolved]
  - Condition aggravated [Recovered/Resolved]
  - Drug eruption [Recovered/Resolved]
  - Generalised erythema [Recovered/Resolved]
  - Rash [Recovered/Resolved]
  - Conjunctival hyperaemia [Recovered/Resolved]
  - Eye discharge [Recovered/Resolved]
  - Conjunctivitis [Recovered/Resolved]
  - Ocular hyperaemia [Recovered/Resolved]
  - Erythema of eyelid [Recovered/Resolved]
  - Scab [Recovered/Resolved]
  - Pyrexia [Recovered/Resolved]
  - Lymphadenopathy [Recovered/Resolved]
  - Lymphadenopathy [Recovered/Resolved]
